FAERS Safety Report 5524121-5 (Version None)
Quarter: 2007Q4

REPORT INFORMATION
  Report Type: 
  Country: None (occurrence: None)
  Receive Date: 20071121
  Receipt Date: 20071116
  Transmission Date: 20080405
  Serious: Yes (Disabling)
  Sender: FDA-Public Use
  Company Number: CH-MERCK-0711CHE00020

PATIENT
  Age: 78 Year
  Sex: Female
  Weight: 47 kg

DRUGS (13)
  1. FOSAMAX [Suspect]
     Route: 048
     Dates: start: 20070316, end: 20070711
  2. ASPIRIN [Suspect]
     Route: 065
     Dates: start: 20070615, end: 20070713
  3. ESOMEPRAZOLE MAGNESIUM [Suspect]
     Route: 048
     Dates: start: 20070615, end: 20070629
  4. FLUCONAZOLE [Suspect]
     Indication: ORAL FUNGAL INFECTION
     Route: 048
     Dates: start: 20070615, end: 20070619
  5. VALPROATE SODIUM AND VALPROIC ACID [Suspect]
     Route: 048
     Dates: start: 20070623, end: 20070629
  6. VALPROATE SODIUM [Suspect]
     Route: 065
     Dates: start: 20070101, end: 20070622
  7. LEVETIRACETAM [Concomitant]
     Route: 048
     Dates: start: 20070101
  8. ENOXAPARIN SODIUM [Concomitant]
     Route: 058
     Dates: start: 20070615, end: 20070701
  9. ACENOCOUMAROL [Concomitant]
     Route: 048
     Dates: start: 20070101
  10. METOPROLOL TARTRATE [Concomitant]
     Route: 065
     Dates: start: 20070101
  11. CYANOCOBALAMIN [Concomitant]
     Route: 058
     Dates: start: 20070211
  12. QUETIAPINE FUMARATE [Concomitant]
     Route: 048
     Dates: start: 20070615
  13. [THERAPY UNSPECIFIED] [Concomitant]
     Route: 048
     Dates: start: 20070101

REACTIONS (1)
  - ERYTHEMA MULTIFORME [None]
